FAERS Safety Report 8290156 (Version 2)
Quarter: 2014Q1

REPORT INFORMATION
  Report Type: Spontaneous
  Country: US (occurrence: None)
  Receive Date: 20111121
  Receipt Date: 20131120
  Transmission Date: 20141002
  Serious: No
  Sender: FDA-Public Use
  Company Number: 1000022640

PATIENT
  Age: 33 Year
  Sex: Female

DRUGS (2)
  1. VIIBRYD [Suspect]
     Indication: ANXIETY
     Dosage: 5 MG (5 MG, 1 IN 1 D), ORAL, 10 MG (10 MG, 1 IN 1 D), ORAL
     Route: 048
     Dates: start: 201107, end: 201107
  2. ATIVAN [Concomitant]

REACTIONS (4)
  - Abdominal discomfort [None]
  - Nausea [None]
  - Dizziness [None]
  - Off label use [None]
